FAERS Safety Report 5240693-2 (Version None)
Quarter: 2007Q1

REPORT INFORMATION
  Report Type: 
  Country: None (occurrence: None)
  Receive Date: 20061208
  Receipt Date: 20051010
  Transmission Date: 20070707
  Serious: Yes (Other)
  Sender: FDA-Public Use
  Company Number: 2005UW15200

PATIENT
  Age: 50 Year
  Sex: Male

DRUGS (11)
  1. CRESTOR [Suspect]
     Dosage: 10 MG QD PO
     Route: 048
     Dates: start: 20050410, end: 20050901
  2. LEXAPRO [Concomitant]
  3. BUSPAR [Concomitant]
  4. ENALAPRIL MALEATE [Concomitant]
  5. VIAGRA [Concomitant]
  6. PROVENTIL-HFA [Concomitant]
  7. K-DUR 10 [Concomitant]
  8. HYDROCHLOROTHIAZIDE [Concomitant]
  9. NASACORT [Concomitant]
  10. ALLEGRA [Concomitant]
  11. PATANOL [Concomitant]

REACTIONS (5)
  - ASTHENIA [None]
  - HYPERTHYROIDISM [None]
  - MUSCLE ATROPHY [None]
  - MYALGIA [None]
  - MYOSITIS [None]
